FAERS Safety Report 4549084-0 (Version None)
Quarter: 2004Q4

REPORT INFORMATION
  Report Type: 
  Country: None (occurrence: None)
  Receive Date: 20041227
  Receipt Date: 20041013
  Transmission Date: 20050328
  Serious: No
  Sender: FDA-Public Use
  Company Number: 04P-163-0277591-00

PATIENT
  Age: 65 Year
  Sex: Female
  Weight: 53.978 kg

DRUGS (10)
  1. HUMIRA [Suspect]
     Indication: RHEUMATOID ARTHRITIS
     Dosage: 40 MG, 1 IN 2 WK, SUBCUTANEOUS
     Route: 058
     Dates: start: 20040401
  2. RALOXIFENE HCL [Concomitant]
  3. LANSOPRAZOLE [Concomitant]
  4. PREDNISONE [Concomitant]
  5. SERTRALINE HYDROCHLORIDE [Concomitant]
  6. BUSPIRONE HCL [Concomitant]
  7. ZOLPIDEM TARTRATE [Concomitant]
  8. TOCOPHEROL CONCENTRATE CAP [Concomitant]
  9. ASCORBIC ACID [Concomitant]
  10. LEKOVIT CA [Concomitant]

REACTIONS (6)
  - ANXIETY [None]
  - DEPRESSION [None]
  - FATIGUE [None]
  - MOOD ALTERED [None]
  - PARAESTHESIA [None]
  - WEIGHT DECREASED [None]
